FAERS Safety Report 8571229-6 (Version None)
Quarter: 2012Q3

REPORT INFORMATION
  Report Type: 
  Country: None (occurrence: None)
  Receive Date: 20120730
  Receipt Date: 20120730
  Transmission Date: 20120928
  Serious: Yes (Hospitalization)
  Sender: FDA-Public Use
  Company Number: None

PATIENT
  Age: 82 Year
  Sex: Male
  Weight: 75 kg

DRUGS (1)
  1. DILTIAZEM [Suspect]
     Indication: ATRIAL FIBRILLATION
     Dosage: 180 MG, EVERY DAY, PO
     Route: 048
     Dates: start: 20120111, end: 20120427

REACTIONS (8)
  - INSOMNIA [None]
  - MALAISE [None]
  - DRUG INTOLERANCE [None]
  - OEDEMA PERIPHERAL [None]
  - PALPITATIONS [None]
  - DECREASED APPETITE [None]
  - VISUAL IMPAIRMENT [None]
  - CONSTIPATION [None]
